FAERS Safety Report 7199437-X (Version None)
Quarter: 2010Q4

REPORT INFORMATION
  Report Type: 
  Country: None (occurrence: None)
  Receive Date: 20101215
  Receipt Date: 20101208
  Transmission Date: 20110411
  Serious: Yes (Hospitalization)
  Sender: FDA-Public Use
  Company Number: WAES 1008USA01594

PATIENT
  Age: 57 Year
  Sex: Female

DRUGS (11)
  1. CAP VORINOSTAT [Suspect]
     Indication: MULTIPLE MYELOMA
     Dosage: 200 MG/DAILY PO
     Route: 048
     Dates: start: 20100202, end: 20100712
  2. BORTEZOMIB [Suspect]
     Indication: MULTIPLE MYELOMA
     Dosage: 1.0 MG/M[2] IV
     Route: 042
     Dates: start: 20100202, end: 20100709
  3. DEXAMETHASONE [Suspect]
     Indication: MULTIPLE MYELOMA
     Dosage: 20 MG PO
     Route: 048
     Dates: start: 20100615, end: 20100710
  4. METOPROLOL SUCCINATE [Concomitant]
  5. DURAGESIC-100 [Concomitant]
  6. KEVATRIL [Concomitant]
  7. LASIX [Concomitant]
  8. PANTAZOL [Concomitant]
  9. ZOMETA [Concomitant]
  10. ACYCLOVIR [Concomitant]
  11. TORSEMIDE [Concomitant]

REACTIONS (11)
  - ALTERED STATE OF CONSCIOUSNESS [None]
  - APHASIA [None]
  - BRAIN OEDEMA [None]
  - CEREBROVASCULAR ARTERIOVENOUS MALFORMATION [None]
  - CSF PROTEIN INCREASED [None]
  - DEHYDRATION [None]
  - GLIOSIS [None]
  - HEAT STROKE [None]
  - HYPERTENSION [None]
  - HYPOKALAEMIA [None]
  - TREATMENT NONCOMPLIANCE [None]
